FAERS Safety Report 7957365-3 (Version None)
Quarter: 2011Q4

REPORT INFORMATION
  Report Type: 
  Country: None (occurrence: None)
  Receive Date: 20111205
  Receipt Date: 20111017
  Transmission Date: 20120403
  Serious: Yes (Other)
  Sender: FDA-Public Use
  Company Number: PHHY2011CN91892

PATIENT
  Age: 20 Month
  Sex: Female
  Weight: 10.5 kg

DRUGS (1)
  1. DIPHENOXYLATE HYDROCHLORIDE+ATROPINE [Suspect]
     Dosage: 6 DF, UNK

REACTIONS (11)
  - AGITATION [None]
  - TOXIC ENCEPHALOPATHY [None]
  - ACCIDENTAL DRUG INTAKE BY CHILD [None]
  - LETHARGY [None]
  - OVERDOSE [None]
  - CENTRAL NERVOUS SYSTEM NECROSIS [None]
  - TACHYPNOEA [None]
  - FLUSHING [None]
  - ACCIDENTAL EXPOSURE [None]
  - ACCIDENTAL OVERDOSE [None]
  - BRAIN OEDEMA [None]
